FAERS Safety Report 16298037 (Version 1)
Quarter: 2019Q2

REPORT INFORMATION
  Report Type: Spontaneous
  Country: ES (occurrence: ES)
  Receive Date: 20190510
  Receipt Date: 20190510
  Transmission Date: 20190711
  Serious: Yes (Other)
  Sender: FDA-Public Use
  Company Number: ES-SUN PHARMACEUTICAL INDUSTRIES LTD-2019RR-207473

PATIENT
  Age: 88 Year
  Sex: Female

DRUGS (2)
  1. OMEPRAZOLE. [Suspect]
     Active Substance: OMEPRAZOLE
     Indication: PRODUCT USED FOR UNKNOWN INDICATION
     Dosage: 1 CADA 24 HORAS
     Route: 048
     Dates: start: 20041011, end: 20190305
  2. CAPTOPRIL / HIDROCLOROTIAZIDA NORMON 50 MG/25 MG COMPRIMIDOS EFG , ... [Suspect]
     Active Substance: CAPTOPRIL\HYDROCHLOROTHIAZIDE
     Indication: HYPERTENSION
     Dosage: 1 CADA 24 HORAS ()
     Route: 048
     Dates: start: 20171115, end: 20190305

REACTIONS (1)
  - Hypomagnesaemia [Recovering/Resolving]

NARRATIVE: CASE EVENT DATE: 20190211
